FAERS Safety Report 9584085 (Version 1)
Quarter: 2013Q4

REPORT INFORMATION
  Report Type: Spontaneous
  Country: US (occurrence: US)
  Receive Date: 20131002
  Receipt Date: 20131002
  Transmission Date: 20140711
  Serious: No
  Sender: FDA-Public Use
  Company Number: US-AMGEN-USASP2013051234

PATIENT
  Age: 56 Year
  Sex: Female

DRUGS (3)
  1. ENBREL [Suspect]
     Indication: RHEUMATOID ARTHRITIS
     Dosage: 50 MG, QWK
     Route: 065
     Dates: start: 20130415
  2. METHOTREXATE [Concomitant]
     Dosage: 2.5 MG 8 TABLETS ONCE A WEEK BY MOUTH
     Route: 048
     Dates: start: 2012, end: 201306
  3. PLAQUENIL                          /00072602/ [Concomitant]
     Dosage: 200 MG, BID
     Dates: start: 2011

REACTIONS (2)
  - Drug effect incomplete [Not Recovered/Not Resolved]
  - Nausea [Recovered/Resolved]
